FAERS Safety Report 9110129 (Version 1)
Quarter: 2013Q1

REPORT INFORMATION
  Report Type: Report from Study
  Country: US (occurrence: US)
  Receive Date: 20130222
  Receipt Date: 20130222
  Transmission Date: 20140127
  Serious: Yes (Hospitalization)
  Sender: FDA-Public Use
  Company Number: US-ROCHE-1193763

PATIENT
  Age: 77 Year
  Sex: Male
  Weight: 113.5 kg

DRUGS (1)
  1. XOLAIR [Suspect]
     Indication: ASTHMA
     Dosage: DOSE: 2 INJECTIONS
     Route: 058
     Dates: start: 20121206

REACTIONS (1)
  - Knee arthroplasty [Recovering/Resolving]
